FAERS Safety Report 6430791-X (Version None)
Quarter: 2009Q4

REPORT INFORMATION
  Report Type: 
  Country: None (occurrence: None)
  Receive Date: 20091103
  Receipt Date: 20091023
  Transmission Date: 20100525
  Serious: Yes (Hospitalization, Other)
  Sender: FDA-Public Use
  Company Number: 230021J08CAN

PATIENT
  Sex: Female

DRUGS (5)
  1. REBIF [Suspect]
     Indication: MULTIPLE SCLEROSIS
     Dosage: 44 MCG, 3 IN 1 WEEKS
     Dates: start: 20021009
  2. AZITHROMYCIN [Concomitant]
  3. BACLOFEN [Concomitant]
  4. IBUPROFEN [Concomitant]
  5. LANSOPRAZOLE [Concomitant]

REACTIONS (15)
  - ABDOMINAL PAIN [None]
  - CHEST PAIN [None]
  - CHOLECYSTECTOMY [None]
  - CHOLECYSTITIS [None]
  - CHOLELITHIASIS [None]
  - CHOLESTEROSIS [None]
  - CONDITION AGGRAVATED [None]
  - FATIGUE [None]
  - HYPOAESTHESIA [None]
  - IMPAIRED HEALING [None]
  - LIVER DISORDER [None]
  - MALAISE [None]
  - MULTIPLE SCLEROSIS [None]
  - PROCEDURAL PAIN [None]
  - ROAD TRAFFIC ACCIDENT [None]
